FAERS Safety Report 4853640-X (Version None)
Quarter: 2005Q4

REPORT INFORMATION
  Report Type: 
  Country: None (occurrence: None)
  Receive Date: 20051214
  Receipt Date: 20051208
  Transmission Date: 20060501
  Serious: Yes (Death)
  Sender: FDA-Public Use
  Company Number: 2005AC01915

PATIENT
  Sex: Male

DRUGS (4)
  1. SEROQUEL [Suspect]
     Route: 048
     Dates: start: 20051001
  2. REMERGON [Concomitant]
     Indication: DEPRESSION
  3. TEMESTA [Concomitant]
     Indication: DEPRESSION
  4. AMOXICILINE [Concomitant]

REACTIONS (3)
  - ABDOMINAL PAIN UPPER [None]
  - CARDIOGENIC SHOCK [None]
  - HAEMORRHAGE [None]
